FAERS Safety Report 6741396-5 (Version None)
Quarter: 2010Q2

REPORT INFORMATION
  Report Type: 
  Country: None (occurrence: None)
  Receive Date: 20100524
  Receipt Date: 20100506
  Transmission Date: 20101027
  Serious: Yes (Life-Threatening, Hospitalization, Disabling)
  Sender: FDA-Public Use
  Company Number: AUR-APL-2010-01159

PATIENT
  Age: 68 Year
  Sex: Male

DRUGS (3)
  1. SIMVASTATIN [Suspect]
     Indication: HYPERLIPIDAEMIA
     Dosage: ORAL
     Route: 048
     Dates: start: 20080401, end: 20080503
  2. PF-03512676 [Suspect]
     Indication: NON-SMALL CELL LUNG CANCER
     Dosage: IM
     Route: 030
     Dates: start: 20080422, end: 20080422
  3. MAGE A3 ASCI [Suspect]
     Indication: NON-SMALL CELL LUNG CANCER
     Dosage: IM
     Route: 030
     Dates: start: 20080422, end: 20080422

REACTIONS (6)
  - ACUTE HEPATIC FAILURE [None]
  - CARDIAC FAILURE ACUTE [None]
  - COAGULOPATHY [None]
  - MALIGNANT NEOPLASM PROGRESSION [None]
  - NON-SMALL CELL LUNG CANCER RECURRENT [None]
  - PLATELET COUNT DECREASED [None]
